FAERS Safety Report 23435383 (Version 3)
Quarter: 2024Q1

REPORT INFORMATION
  Report Type: Report from Study
  Country: US (occurrence: US)
  Receive Date: 20240123
  Receipt Date: 20240305
  Transmission Date: 20240409
  Serious: Yes (Hospitalization, Other)
  Sender: FDA-Public Use
  Company Number: US-ABBVIE-5599216

PATIENT
  Age: 58 Year
  Sex: Male
  Weight: 104.32 kg

DRUGS (7)
  1. HUMIRA [Suspect]
     Active Substance: ADALIMUMAB
     Indication: Ankylosing spondylitis
     Dosage: FORM STRENGTH: 40 MILLIGRAM
     Route: 058
     Dates: start: 20090202
  2. HUMIRA [Suspect]
     Active Substance: ADALIMUMAB
     Indication: Ankylosing spondylitis
     Dosage: FORM STRENGTH: 40 MILLIGRAM
     Route: 058
     Dates: start: 20120121, end: 202401
  3. VALSARTAN [Concomitant]
     Active Substance: VALSARTAN
     Indication: Hypertension
  4. AMLODIPINE BESYLATE [Concomitant]
     Active Substance: AMLODIPINE BESYLATE
     Indication: Hypertension
     Route: 065
  5. JARDIANCE [Concomitant]
     Active Substance: EMPAGLIFLOZIN
     Indication: Diabetes mellitus
  6. PANTOPRAZOLE [Concomitant]
     Active Substance: PANTOPRAZOLE
     Indication: Gastrooesophageal reflux disease
  7. ROSUVASTATIN [Concomitant]
     Active Substance: ROSUVASTATIN
     Indication: Blood cholesterol abnormal
     Route: 065

REACTIONS (19)
  - Rib fracture [Recovered/Resolved]
  - Atrial fibrillation [Recovered/Resolved]
  - Amnesia [Not Recovered/Not Resolved]
  - Cerebrovascular accident [Recovered/Resolved]
  - COVID-19 pneumonia [Recovered/Resolved]
  - Thoracic vertebral fracture [Recovered/Resolved]
  - Splenic rupture [Recovered/Resolved]
  - Fall [Recovered/Resolved]
  - Arterial occlusive disease [Recovered/Resolved]
  - Cerebrovascular accident [Recovered/Resolved]
  - Vertigo [Recovered/Resolved]
  - Cholecystectomy [Recovered/Resolved]
  - Hemiplegia [Recovered/Resolved]
  - Vision blurred [Recovered/Resolved]
  - Osteoporosis [Recovered/Resolved]
  - Dysphonia [Not Recovered/Not Resolved]
  - Oxygen saturation decreased [Recovered/Resolved]
  - Painful respiration [Recovered/Resolved]
  - Facial paralysis [Recovered/Resolved]

NARRATIVE: CASE EVENT DATE: 20210901
